FAERS Safety Report 5984204-2 (Version None)
Quarter: 2008Q4

REPORT INFORMATION
  Report Type: 
  Country: None (occurrence: None)
  Receive Date: 20081205
  Receipt Date: 20081205
  Transmission Date: 20090506
  Serious: Yes (Other)
  Sender: FDA-Public Use
  Company Number: None

PATIENT
  Age: 70 Year
  Sex: Male
  Weight: 58.9676 kg

DRUGS (1)
  1. ROPINIROLE [Suspect]
     Indication: RESTLESS LEGS SYNDROME
     Dosage: PO
     Route: 048
     Dates: start: 20081108, end: 20081204

REACTIONS (3)
  - ABNORMAL BEHAVIOUR [None]
  - IRRITABILITY [None]
  - MEDICATION ERROR [None]
